FAERS Safety Report 4629447-5 (Version None)
Quarter: 2005Q2

REPORT INFORMATION
  Report Type: 
  Country: None (occurrence: None)
  Receive Date: 20050405
  Receipt Date: 20050323
  Transmission Date: 20051028
  Serious: Yes (Hospitalization)
  Sender: FDA-Public Use
  Company Number: 2003167781JP

PATIENT
  Age: 34 Year
  Sex: Male

DRUGS (7)
  1. CLINDAMYCIN PHOSPHATE [Suspect]
     Indication: NASOPHARYNGITIS
     Dosage: 600 MG, INTRAVENOUS
     Route: 042
     Dates: start: 20030626, end: 20030627
  2. CARBOCISTEINE (CARBOCISTEINE) [Concomitant]
  3. AMBROXOL HYDROCHLORIDE (AMBROXOL HYDROCHLORIDE) [Concomitant]
  4. TEPRENONE (TEPRENONE) [Concomitant]
  5. CLARITHROMYCIN [Concomitant]
  6. AZITHROMYCIN [Concomitant]
  7. DEXTROMETHORPHAN HYDROBROMIDE [Concomitant]

REACTIONS (1)
  - LEUKOCYTOCLASTIC VASCULITIS [None]
